FAERS Safety Report 9927647 (Version 1)
Quarter: 2014Q1

REPORT INFORMATION
  Report Type: Spontaneous
  Country: SE (occurrence: SE)
  Receive Date: 20140227
  Receipt Date: 20140227
  Transmission Date: 20141002
  Serious: Yes (Hospitalization)
  Sender: FDA-Public Use
  Company Number: SE-ROCHE-1356411

PATIENT
  Age: 72 Year
  Sex: Female

DRUGS (6)
  1. MABTHERA [Suspect]
     Indication: RHEUMATOID ARTHRITIS
     Route: 042
     Dates: start: 201009, end: 201110
  2. HUMIRA [Suspect]
     Indication: RHEUMATOID ARTHRITIS
     Route: 065
     Dates: start: 200412, end: 200502
  3. ORENCIA [Suspect]
     Indication: RHEUMATOID ARTHRITIS
     Route: 065
     Dates: start: 200905, end: 2010
  4. IMUREL [Suspect]
     Indication: RHEUMATOID ARTHRITIS
     Route: 065
     Dates: start: 2005, end: 2009
  5. ALVEDON [Concomitant]
     Route: 065
  6. WARAN [Concomitant]
     Route: 065

REACTIONS (1)
  - Colon cancer [Unknown]
